FAERS Safety Report 9345461 (Version 2)
Quarter: 2015Q4

REPORT INFORMATION
  Report Type: Report from Study
  Country: CA (occurrence: CA)
  Receive Date: 20130613
  Receipt Date: 20151030
  Transmission Date: 20160305
  Serious: Yes (Other)
  Sender: FDA-Public Use
  Company Number: CA-ROCHE-1236087

PATIENT
  Sex: Female
  Weight: 113.5 kg

DRUGS (14)
  1. NOVORAPID [Concomitant]
     Active Substance: INSULIN ASPART
  2. ACTONEL [Concomitant]
     Active Substance: RISEDRONATE SODIUM
  3. RITUXAN [Suspect]
     Active Substance: RITUXIMAB
     Indication: OFF LABEL USE
     Route: 042
     Dates: start: 20121115
  4. PLAQUENIL [Concomitant]
     Active Substance: HYDROXYCHLOROQUINE SULFATE
  5. MIRAPEX [Concomitant]
     Active Substance: PRAMIPEXOLE DIHYDROCHLORIDE
     Indication: RESTLESS LEGS SYNDROME
  6. ATENOLOL. [Concomitant]
     Active Substance: ATENOLOL
  7. DOMPERIDONE [Concomitant]
     Active Substance: DOMPERIDONE
  8. IMURAN [Concomitant]
     Active Substance: AZATHIOPRINE
  9. RITUXAN [Suspect]
     Active Substance: RITUXIMAB
     Indication: ANTISYNTHETASE SYNDROME
     Dosage: FREQUENCY: DAY 1, DAY 15
     Route: 042
     Dates: start: 20121023
  10. COUMADINE [Concomitant]
     Active Substance: WARFARIN SODIUM
  11. PREDNISONE. [Concomitant]
     Active Substance: PREDNISONE
  12. RAMIPRIL. [Concomitant]
     Active Substance: RAMIPRIL
  13. TRAMADOL. [Concomitant]
     Active Substance: TRAMADOL
  14. LASIX [Concomitant]
     Active Substance: FUROSEMIDE

REACTIONS (3)
  - Weight increased [Unknown]
  - Cataract [Unknown]
  - Sleep apnoea syndrome [Not Recovered/Not Resolved]
